FAERS Safety Report 19801204 (Version 1)
Quarter: 2021Q3

REPORT INFORMATION
  Report Type: Spontaneous
  Country: JP (occurrence: JP)
  Receive Date: 20210907
  Receipt Date: 20210907
  Transmission Date: 20211014
  Serious: Yes (Other)
  Sender: FDA-Public Use
  Company Number: JP-ANIPHARMA-2021-JP-000380

PATIENT
  Age: 12 Year
  Sex: Male
  Weight: 46 kg

DRUGS (5)
  1. DIPYRIDAMOLE (NON?SPECIFIC) [Suspect]
     Active Substance: DIPYRIDAMOLE
     Indication: IGA NEPHROPATHY
     Dosage: 300 MG
  2. METHYLPREDNISOLONE. [Suspect]
     Active Substance: METHYLPREDNISOLONE
     Indication: IGA NEPHROPATHY
     Dosage: 1 GRAM PER WEEK
     Route: 042
  3. HEPARIN [Concomitant]
     Active Substance: HEPARIN SODIUM
     Dosage: 10 UNIT/KG/HOUR
  4. PREDNISOLONE. [Concomitant]
     Active Substance: PREDNISOLONE
     Dosage: 40 MG
  5. MIZORIBINE [Concomitant]
     Active Substance: MIZORIBINE
     Dosage: 150 MG

REACTIONS (2)
  - Myocardial ischaemia [Recovered/Resolved]
  - Drug interaction [Recovered/Resolved]
